FAERS Safety Report 19400215 (Version 1)
Quarter: 2021Q2

REPORT INFORMATION
  Report Type: Spontaneous
  Country: US (occurrence: US)
  Receive Date: 20210610
  Receipt Date: 20210610
  Transmission Date: 20210717
  Serious: No
  Sender: FDA-Public Use
  Company Number: US-MYLANLABS-2021M1031154

PATIENT
  Sex: Female

DRUGS (12)
  1. FENTANYL TRANSDERMAL SYSTEM [Suspect]
     Active Substance: FENTANYL
     Indication: PAIN
     Dosage: 12 MICROGRAM, QH (1 PATCH EVERY 72 HOURS)
     Route: 062
     Dates: start: 20210526
  2. PLAVIX [Concomitant]
     Active Substance: CLOPIDOGREL BISULFATE
     Dosage: UNK
  3. MIRALAX [Concomitant]
     Active Substance: POLYETHYLENE GLYCOL 3350
     Dosage: UNK
  4. CALCIUM +VIT D [Concomitant]
     Active Substance: CALCIUM\VITAMIN D
     Dosage: UNK
  5. TRAMADOL. [Concomitant]
     Active Substance: TRAMADOL
     Dosage: UNK
  6. ATORVASTATIN [Concomitant]
     Active Substance: ATORVASTATIN
     Dosage: UNK
  7. BIOTIN [Concomitant]
     Active Substance: BIOTIN
     Dosage: UNK
  8. DORZOLAMIDE/TIMOLOL                /01419801/ [Concomitant]
     Active Substance: DORZOLAMIDE\TIMOLOL
     Dosage: UNK
  9. SENOKOT [Concomitant]
     Active Substance: SENNOSIDES
     Dosage: UNK
  10. ASPIRIN                            /00002701/ [Concomitant]
     Active Substance: ASPIRIN
     Dosage: UNK
  11. OMEPRAZOLE. [Concomitant]
     Active Substance: OMEPRAZOLE
     Dosage: UNK
  12. LEVOTHYROXINE. [Concomitant]
     Active Substance: LEVOTHYROXINE
     Dosage: UNK

REACTIONS (1)
  - Drug ineffective [Not Recovered/Not Resolved]

NARRATIVE: CASE EVENT DATE: 20210526
